FAERS Safety Report 14978732 (Version 2)
Quarter: 2018Q3

REPORT INFORMATION
  Report Type: Spontaneous
  Country: US (occurrence: US)
  Receive Date: 20180606
  Receipt Date: 20180706
  Transmission Date: 20181010
  Serious: Yes (Other)
  Sender: FDA-Public Use
  Company Number: US-009507513-1805USA015059

PATIENT
  Age: 20 Year
  Sex: Female
  Weight: 58.96 kg

DRUGS (1)
  1. NEXPLANON [Suspect]
     Active Substance: ETONOGESTREL
     Indication: CONTRACEPTION
     Dosage: 3 YEAR IMPLANT INSIDE THE LEFT ARM
     Route: 059
     Dates: start: 20180518

REACTIONS (6)
  - Insomnia [Unknown]
  - Eating disorder [Unknown]
  - Suicidal ideation [Recovered/Resolved]
  - Depression [Unknown]
  - Suicide attempt [Unknown]
  - Nausea [Unknown]

NARRATIVE: CASE EVENT DATE: 2018
